FAERS Safety Report 5894721-1 (Version None)
Quarter: 2008Q3

REPORT INFORMATION
  Report Type: 
  Country: None (occurrence: None)
  Receive Date: 20080924
  Receipt Date: 20080523
  Transmission Date: 20090109
  Serious: No
  Sender: FDA-Public Use
  Company Number: US-ASTRAZENECA-2008UW10599

PATIENT
  Age: 58 Year
  Weight: 84.5 kg

DRUGS (23)
  1. SEROQUEL [Suspect]
     Indication: BIPOLAR I DISORDER
     Route: 048
     Dates: start: 20010101
  2. CHLORTHALIDONE [Concomitant]
  3. CLARINEX [Concomitant]
  4. FLOVENT [Concomitant]
     Route: 055
  5. LIPITOR [Concomitant]
  6. HYDROCODONE BITARTRATE + ACETAMINOPHEN [Concomitant]
  7. METRONIDAZOLE [Concomitant]
  8. METRONIDAZOLE [Concomitant]
     Route: 061
  9. NASONEX [Concomitant]
  10. SINGULAIR [Concomitant]
  11. SYNTHROID [Concomitant]
  12. VERAPAMIL [Concomitant]
  13. ZADITOR [Concomitant]
  14. CLONAZEPAM [Concomitant]
  15. LAMICTAL [Concomitant]
  16. ALLERGY FORMULA VITAMINS [Concomitant]
  17. ENERGENIX VITAMINS [Concomitant]
  18. ASCORBIC ACID [Concomitant]
  19. PHYTOMINICS SALINE [Concomitant]
     Route: 045
  20. CHONDROITIN [Concomitant]
  21. TYLENOL (CAPLET) [Concomitant]
  22. ZICAM [Concomitant]
  23. AIRBORNE [Concomitant]

REACTIONS (4)
  - ALOPECIA [None]
  - DRY MOUTH [None]
  - FATIGUE [None]
  - WEIGHT INCREASED [None]
